FAERS Safety Report 8957336 (Version 1)
Quarter: 2012Q4

REPORT INFORMATION
  Report Type: Spontaneous
  Country: DE (occurrence: None)
  Receive Date: 20121130
  Receipt Date: 20121130
  Transmission Date: 20130627
  Serious: Yes (Hospitalization)
  Sender: FDA-Public Use
  Company Number: 1507302

PATIENT
  Age: 46 Year
  Sex: Male

DRUGS (3)
  1. PENTOSTATIN [Suspect]
     Indication: B-CELL CHRONIC LYMPHOCYTIC LEUKEMIA
  2. RITUXIMAB [Suspect]
     Indication: B-CELL CHRONIC LYMPHOCYTIC LEUKEMIA
  3. CYCLOPHOSPHAMIDE [Suspect]
     Indication: B-CELL CHRONIC LYMPHOCYTIC LEUKEMIA

REACTIONS (1)
  - Hepatitis E [None]
